FAERS Safety Report 23139359 (Version 2)
Quarter: 2023Q4

REPORT INFORMATION
  Report Type: Spontaneous
  Country: FR (occurrence: FR)
  Receive Date: 20231102
  Receipt Date: 20231129
  Transmission Date: 20240110
  Serious: Yes (Death, Other)
  Sender: FDA-Public Use
  Company Number: FR-Accord-387323

PATIENT
  Age: 70 Year
  Sex: Male
  Weight: 64 kg

DRUGS (8)
  1. CARBOPLATIN [Suspect]
     Active Substance: CARBOPLATIN
     Indication: Squamous cell carcinoma of head and neck
     Dosage: 5 AUC, 1Q3W
     Route: 042
     Dates: start: 20230906, end: 20230906
  2. FLUOROURACIL [Suspect]
     Active Substance: FLUOROURACIL
     Indication: Squamous cell carcinoma of head and neck
     Dosage: 1000 MILLIGRAM/SQ METER/DAY D1-D4, 1Q3W
     Route: 042
     Dates: start: 20230906, end: 20230910
  3. PEMBROLIZUMAB [Suspect]
     Active Substance: PEMBROLIZUMAB
     Indication: Squamous cell carcinoma of head and neck
     Dosage: 200 MILLIGRAM, 1Q3W
     Route: 042
     Dates: start: 20230906, end: 20230927
  4. SKENAN [Suspect]
     Active Substance: MORPHINE SULFATE
     Indication: Tumour pain
     Dosage: QD
     Route: 062
     Dates: start: 202308, end: 20230908
  5. ONDANSETRON [Concomitant]
     Active Substance: ONDANSETRON
     Dates: start: 20230906, end: 20230927
  6. METHYLPREDNISOLONE [Concomitant]
     Active Substance: METHYLPREDNISOLONE
     Dates: start: 20230906, end: 20230927
  7. CARBOPLATIN [Suspect]
     Active Substance: CARBOPLATIN
     Indication: Squamous cell carcinoma of head and neck
     Dosage: 4 AUC, 1Q3W
     Route: 042
     Dates: start: 20230927, end: 20230927
  8. FLUOROURACIL [Suspect]
     Active Substance: FLUOROURACIL
     Indication: Squamous cell carcinoma of head and neck
     Dosage: 800 MILLIGRAM/SQ METER/DAY D1-D4, 1Q3W
     Route: 042
     Dates: start: 20230927, end: 20231001

REACTIONS (2)
  - General physical health deterioration [Fatal]
  - Depression [Not Recovered/Not Resolved]

NARRATIVE: CASE EVENT DATE: 20230908
